FAERS Safety Report 21492612 (Version 1)
Quarter: 2022Q4

REPORT INFORMATION
  Report Type: Spontaneous
  Country: US (occurrence: US)
  Receive Date: 20221021
  Receipt Date: 20221021
  Transmission Date: 20230112
  Serious: Yes (Other)
  Sender: FDA-Public Use
  Company Number: US-PFIZER INC-202201242529

PATIENT
  Age: 69 Year
  Sex: Female
  Weight: 47.17 kg

DRUGS (7)
  1. PAXLOVID [Suspect]
     Active Substance: NIRMATRELVIR\RITONAVIR
     Indication: COVID-19 treatment
     Dosage: UNK UNK, 2X/DAY (1 LARGER PILL AND 2 SMALLER PILLS TWICE DAILY FOR 5 DAYS)
     Dates: start: 20221010, end: 20221014
  2. OXYCODONE [Suspect]
     Active Substance: OXYCODONE
     Dosage: 5 MG, 1X/DAY
  3. CLONAZEPAM [Suspect]
     Active Substance: CLONAZEPAM
     Indication: Generalised anxiety disorder
     Dosage: UNK, 2X/DAY (2MG TABLET TWICE DAILY AND 1/2 TABLET AT NIGHT)
  4. TRAZODONE [Suspect]
     Active Substance: TRAZODONE HYDROCHLORIDE
     Dosage: 300 MG, DAILY (3-100MG TABLETS AT BEDTIME HCL  )
  5. TIZANIDINE HYDROCHLORIDE [Suspect]
     Active Substance: TIZANIDINE HYDROCHLORIDE
     Indication: Radiculopathy
     Dosage: 2 MG, 2X/DAY (2MG TABLET-1-2 TABLETS BY MOUTH EVERY 6 HOURS)
     Route: 048
     Dates: start: 20220925
  6. TIZANIDINE HYDROCHLORIDE [Suspect]
     Active Substance: TIZANIDINE HYDROCHLORIDE
     Indication: Sciatica
  7. DULOXETINE [Concomitant]
     Active Substance: DULOXETINE
     Indication: Generalised anxiety disorder
     Dosage: 60 MG, 1X/DAY

REACTIONS (6)
  - Croup infectious [Unknown]
  - Withdrawal syndrome [Unknown]
  - Insomnia [Unknown]
  - Fatigue [Unknown]
  - Emotional poverty [Unknown]
  - Drug withdrawal syndrome [Unknown]

NARRATIVE: CASE EVENT DATE: 20221010
